FAERS Safety Report 16492666 (Version 2)
Quarter: 2019Q3

REPORT INFORMATION
  Report Type: Report from Study
  Country: FR (occurrence: FR)
  Receive Date: 20190628
  Receipt Date: 20190814
  Transmission Date: 20191004
  Serious: Yes (Other)
  Sender: FDA-Public Use
  Company Number: PHHY2019FR121365

PATIENT
  Age: 32 Year
  Sex: Male
  Weight: 105 kg

DRUGS (1)
  1. TISAGENLECLEUCEL. [Suspect]
     Active Substance: TISAGENLECLEUCEL
     Indication: DIFFUSE LARGE B-CELL LYMPHOMA
     Dosage: 2.1 X 10^8 CAR POSITIVE VIABLE T CELLS (1 BAG OF 20 ML)
     Route: 042
     Dates: start: 20190312

REACTIONS (9)
  - Lymphopenia [Unknown]
  - Febrile bone marrow aplasia [Recovered/Resolved]
  - Febrile neutropenia [Unknown]
  - Blood pressure decreased [Unknown]
  - Neutropenia [Recovered/Resolved]
  - Cytokine release syndrome [Recovered/Resolved]
  - Heart rate increased [Recovered/Resolved]
  - Leukopenia [Unknown]
  - Anaemia [Unknown]

NARRATIVE: CASE EVENT DATE: 20190314
